FAERS Safety Report 19167678 (Version 2)
Quarter: 2021Q2

REPORT INFORMATION
  Report Type: Report from Study
  Country: DE (occurrence: DE)
  Receive Date: 20210422
  Receipt Date: 20210519
  Transmission Date: 20210717
  Serious: Yes (Life-Threatening, Hospitalization, Other)
  Sender: FDA-Public Use
  Company Number: DE-BRISTOL-MYERS SQUIBB COMPANY-BMS-2021-025535

PATIENT
  Age: 57 Year
  Sex: Female
  Weight: 65.7 kg

DRUGS (7)
  1. NIVOLUMAB [Suspect]
     Active Substance: NIVOLUMAB
     Dosage: 240 MILLIGRAM
     Route: 065
     Dates: start: 20210129, end: 20210129
  2. NIVOLUMAB [Suspect]
     Active Substance: NIVOLUMAB
     Dosage: 240 MILLIGRAM
     Route: 065
     Dates: start: 20210211, end: 20210211
  3. IPILIMUMAB [Suspect]
     Active Substance: IPILIMUMAB
     Dosage: 207 MILLIGRAM
     Route: 065
     Dates: start: 20201218, end: 20201218
  4. NIVOLUMAB [Suspect]
     Active Substance: NIVOLUMAB
     Dosage: 240 MILLIGRAM
     Route: 065
     Dates: start: 20210225, end: 20210225
  5. NIVOLUMAB [Suspect]
     Active Substance: NIVOLUMAB
     Dosage: 69 MILLIGRAM
     Route: 065
     Dates: start: 20201218, end: 20201218
  6. NIVOLUMAB [Suspect]
     Active Substance: NIVOLUMAB
     Indication: SMALL CELL LUNG CANCER
     Dosage: 69 MILLIGRAM
     Route: 065
     Dates: start: 20201119, end: 20201119
  7. IPILIMUMAB [Suspect]
     Active Substance: IPILIMUMAB
     Indication: SMALL CELL LUNG CANCER
     Dosage: 207 MILLIGRAM
     Route: 065
     Dates: start: 20201119, end: 20201119

REACTIONS (1)
  - Diabetes mellitus [Recovered/Resolved with Sequelae]

NARRATIVE: CASE EVENT DATE: 20210312
